FAERS Safety Report 13520407 (Version 3)
Quarter: 2017Q2

REPORT INFORMATION
  Report Type: Report from Study
  Country: BE (occurrence: BE)
  Receive Date: 20170507
  Receipt Date: 20170525
  Transmission Date: 20170830
  Serious: Yes (Other)
  Sender: FDA-Public Use
  Company Number: BE-BIOGEN-2017BI00397954

PATIENT
  Age: 58 Year
  Sex: Female

DRUGS (3)
  1. AVONEX [Suspect]
     Active Substance: INTERFERON BETA-1A
     Indication: MULTIPLE SCLEROSIS
     Route: 030
     Dates: start: 2002
  2. AVONEX [Suspect]
     Active Substance: INTERFERON BETA-1A
     Route: 030
     Dates: start: 20170428
  3. DAFALGAN [Concomitant]
     Active Substance: ACETAMINOPHEN
     Indication: PRODUCT USED FOR UNKNOWN INDICATION
     Route: 065

REACTIONS (22)
  - Eye irritation [Unknown]
  - Cervix disorder [Unknown]
  - Injection site warmth [Recovered/Resolved with Sequelae]
  - Influenza like illness [Recovered/Resolved with Sequelae]
  - Renal impairment [Unknown]
  - Erythema [Unknown]
  - Injection site haematoma [Unknown]
  - Meningioma [Unknown]
  - Pancreatic disorder [Unknown]
  - Dry mouth [Unknown]
  - Myalgia [Unknown]
  - Decreased appetite [Unknown]
  - Central nervous system lesion [Unknown]
  - Pyrexia [Unknown]
  - Injection site mass [Not Recovered/Not Resolved]
  - Rash papular [Unknown]
  - Injection site erythema [Recovered/Resolved with Sequelae]
  - Injection site pain [Unknown]
  - Crohn^s disease [Unknown]
  - Hepatic lesion [Unknown]
  - Dry eye [Unknown]
  - Nausea [Unknown]

NARRATIVE: CASE EVENT DATE: 20170428
